FAERS Safety Report 7547118-2 (Version None)
Quarter: 2011Q2

REPORT INFORMATION
  Report Type: 
  Country: None (occurrence: None)
  Receive Date: 20110607
  Receipt Date: 20110531
  Transmission Date: 20111010
  Serious: Yes (Other)
  Sender: FDA-Public Use
  Company Number: 2011SP025267

PATIENT
  Sex: Male

DRUGS (2)
  1. DEXAMETHASONE SODIUM PHOSPHATE [Suspect]
     Indication: PREMEDICATION
     Dosage: IV
     Route: 042
  2. TAXOL [Suspect]
     Indication: NEOPLASM MALIGNANT
     Dosage: ;INDRP
     Route: 041

REACTIONS (1)
  - DELIRIUM [None]
